FAERS Safety Report 5356897-4 (Version None)
Quarter: 2007Q2

REPORT INFORMATION
  Report Type: 
  Country: None (occurrence: None)
  Receive Date: 20070530
  Receipt Date: 20070315
  Transmission Date: 20071010
  Serious: Yes (Other)
  Sender: FDA-Public Use
  Company Number: US200701004361

PATIENT
  Age: 69 Year
  Sex: Male
  Weight: 76.2 kg

DRUGS (1)
  1. ZYPREXA [Suspect]
     Indication: MENTAL DISORDER
     Dates: start: 19960101, end: 20060101

REACTIONS (3)
  - DIABETES MELLITUS [None]
  - HYPERGLYCAEMIA [None]
  - PANCREATITIS [None]
